FAERS Safety Report 10974106 (Version 1)
Quarter: 2015Q2

REPORT INFORMATION
  Report Type: Spontaneous
  Country: US (occurrence: US)
  Receive Date: 20150401
  Receipt Date: 20150401
  Transmission Date: 20150821
  Serious: Yes (Hospitalization)
  Sender: FDA-Public Use
  Company Number: US-JNJFOC-20150319340

PATIENT
  Sex: Male
  Weight: 83.92 kg

DRUGS (2)
  1. REMICADE [Suspect]
     Active Substance: INFLIXIMAB
     Indication: RHEUMATOID ARTHRITIS
     Dosage: DOSING FREQUENCY: ^THINK IT WAS ONCE A MONTH^
     Route: 042
     Dates: start: 2005
  2. REMICADE [Suspect]
     Active Substance: INFLIXIMAB
     Indication: RHEUMATOID ARTHRITIS
     Dosage: DOSING FREQUENCY: ^EVERY 5 OR 6 WEEKS^
     Route: 042

REACTIONS (4)
  - Surgery [Unknown]
  - Hospitalisation [Unknown]
  - Shoulder operation [Unknown]
  - Myocardial infarction [Unknown]

NARRATIVE: CASE EVENT DATE: 2014
